FAERS Safety Report 8345981-9 (Version None)
Quarter: 2012Q2

REPORT INFORMATION
  Report Type: 
  Country: None (occurrence: None)
  Receive Date: 20120509
  Receipt Date: 20120504
  Transmission Date: 20120825
  Serious: No
  Sender: FDA-Public Use
  Company Number: US-PFIZER INC-2012110332

PATIENT
  Age: 43 Year
  Sex: Male
  Weight: 81.179 kg

DRUGS (1)
  1. IBUPROFEN (ADVIL) [Suspect]
     Indication: BACK PAIN
     Dosage: UNK, TWO TIMES A DAY
     Dates: start: 20120401

REACTIONS (1)
  - HYPERHIDROSIS [None]
